FAERS Safety Report 5831242-6 (Version None)
Quarter: 2008Q3

REPORT INFORMATION
  Report Type: 
  Country: None (occurrence: None)
  Receive Date: 20080801
  Receipt Date: 20080522
  Transmission Date: 20090109
  Serious: No
  Sender: FDA-Public Use
  Company Number: US-BRISTOL-MYERS SQUIBB COMPANY-14201438

PATIENT
  Age: 75 Year
  Sex: Female
  Weight: 70 kg

DRUGS (6)
  1. COUMADIN [Suspect]
     Indication: ATRIAL SEPTAL DEFECT
     Dosage: 1DF = 4MG,1 1/2 TABLETS (6MG)
  2. TYLENOL [Concomitant]
  3. MOTRIN [Concomitant]
  4. PROCARDIA [Concomitant]
  5. PRAVACHOL [Concomitant]
  6. VITAMIN D [Concomitant]

REACTIONS (1)
  - CONTUSION [None]
